FAERS Safety Report 9350312 (Version 1)
Quarter: 2013Q2

REPORT INFORMATION
  Report Type: Spontaneous
  Country: US (occurrence: US)
  Receive Date: 20130617
  Receipt Date: 20130617
  Transmission Date: 20140414
  Serious: No
  Sender: FDA-Public Use
  Company Number: US-JNJFOC-20130601222

PATIENT
  Age: 36 Year
  Sex: Female
  Weight: 46.72 kg

DRUGS (6)
  1. DURAGESIC [Suspect]
     Indication: BACK DISORDER
     Route: 062
     Dates: start: 201301
  2. DURAGESIC [Suspect]
     Indication: CARDIAC DISORDER
     Route: 062
     Dates: start: 201301
  3. DURAGESIC [Suspect]
     Indication: DISEASE PROGRESSION
     Route: 062
     Dates: start: 201301
  4. OXYCODONE/ACETAMINOPHEN [Concomitant]
     Indication: BREAKTHROUGH PAIN
     Dosage: 10/325MG
     Route: 048
     Dates: start: 2007
  5. KLONOPIN [Concomitant]
     Indication: ANXIETY
     Route: 048
     Dates: start: 2011
  6. GABAPENTIN [Concomitant]
     Indication: NEURALGIA
     Route: 048
     Dates: start: 201301

REACTIONS (2)
  - Wrong technique in drug usage process [Not Recovered/Not Resolved]
  - Product quality issue [Unknown]
